FAERS Safety Report 11047218 (Version 1)
Quarter: 2015Q2

REPORT INFORMATION
  Report Type: Spontaneous
  Country: US (occurrence: None)
  Receive Date: 20150417
  Receipt Date: 20150417
  Transmission Date: 20150821
  Serious: Yes (Other)
  Sender: FDA-Public Use
  Company Number: None

PATIENT
  Age: 51 Year
  Sex: Male

DRUGS (1)
  1. HUMIRA [Suspect]
     Active Substance: ADALIMUMAB
     Dosage: DOSE FORM: INJECTABLE
     Route: 058
     Dates: start: 20150224, end: 20150310

REACTIONS (1)
  - Injection site mass [None]

NARRATIVE: CASE EVENT DATE: 20150310
